FAERS Safety Report 23219782 (Version 2)
Quarter: 2023Q4

REPORT INFORMATION
  Report Type: Other
  Country: US (occurrence: None)
  Receive Date: 20231122
  Receipt Date: 20231128
  Transmission Date: 20240110
  Serious: Yes (Other)
  Sender: FDA-Public Use
  Company Number: US-ROCHE-3459305

PATIENT

DRUGS (5)
  1. MYCOPHENOLATE MOFETIL [Suspect]
     Active Substance: MYCOPHENOLATE MOFETIL
     Indication: Prophylaxis against transplant rejection
     Dosage: BY MOUTH, STARTING ON DAY +5 THROUGH DAY +100
     Route: 042
  2. BUSULFAN [Suspect]
     Active Substance: BUSULFAN
     Indication: Prophylaxis against transplant rejection
     Route: 042
  3. FLUDARABINE [Suspect]
     Active Substance: FLUDARABINE PHOSPHATE
     Indication: Prophylaxis against transplant rejection
     Dosage: IMMEDIATELY FOLLOWED BY BUSULFAN GIVEN OVER 3 HOURS
     Route: 042
  4. MESNA [Concomitant]
     Active Substance: MESNA
     Dosage: BEFORE THE FIRST DOSE OF PTCY
     Route: 042
  5. CYCLOPHOSPHAMIDE [Concomitant]
     Active Substance: CYCLOPHOSPHAMIDE
     Route: 042

REACTIONS (37)
  - Febrile neutropenia [Unknown]
  - Mucosal inflammation [Unknown]
  - Nausea [Unknown]
  - Diarrhoea [Unknown]
  - Ileus [Unknown]
  - Gastrointestinal haemorrhage [Unknown]
  - Idiopathic pneumonia syndrome [Unknown]
  - Cardiac failure congestive [Unknown]
  - Hypertension [Unknown]
  - Embolism [Unknown]
  - Blood bilirubin increased [Unknown]
  - Alanine aminotransferase increased [Unknown]
  - Headache [Unknown]
  - Confusional state [Unknown]
  - Aplasia pure red cell [Unknown]
  - Hypervolaemia [Unknown]
  - Cystitis haemorrhagic [Unknown]
  - Alpha haemolytic streptococcal infection [Unknown]
  - Alpha haemolytic streptococcal infection [Unknown]
  - Staphylococcal infection [Unknown]
  - Corynebacterium infection [Unknown]
  - Escherichia infection [Unknown]
  - Klebsiella infection [Unknown]
  - Acinetobacter infection [Unknown]
  - Staphylococcal infection [Unknown]
  - Enterococcal infection [Unknown]
  - Pseudomonas infection [Unknown]
  - Clostridium difficile colitis [Unknown]
  - Cystitis viral [Unknown]
  - Pneumonia cytomegaloviral [Unknown]
  - Cytomegalovirus oesophagitis [Unknown]
  - Parainfluenzae virus infection [Unknown]
  - Human herpesvirus 6 infection [Unknown]
  - Herpes simplex [Unknown]
  - Pneumonia respiratory syncytial viral [Unknown]
  - Metapneumovirus infection [Unknown]
  - Rhinovirus infection [Unknown]
